FAERS Safety Report 14401647 (Version 2)
Quarter: 2018Q1

REPORT INFORMATION
  Report Type: Report from Study
  Country: JP (occurrence: JP)
  Receive Date: 20180117
  Receipt Date: 20180124
  Transmission Date: 20180509
  Serious: Yes (Death)
  Sender: FDA-Public Use
  Company Number: JP-ASTRAZENECA-2018SE06140

PATIENT
  Age: 801 Month
  Sex: Male

DRUGS (8)
  1. FLUTIFORM [Suspect]
     Active Substance: FLUTICASONE PROPIONATE\FORMOTEROL FUMARATE
     Indication: ASTHMA
     Route: 055
     Dates: end: 20170606
  2. VITAMEDIN [Concomitant]
     Active Substance: CYANOCOBALAMIN\PYRIDOXINE HYDROCHLORIDE\THIAMINE
     Route: 048
     Dates: end: 20170606
  3. FERRIC AMMONIUM CITRATE [Concomitant]
     Active Substance: FERRIC AMMONIUM CITRATE
     Route: 048
     Dates: end: 20170606
  4. EKLIRA [Suspect]
     Active Substance: ACLIDINIUM BROMIDE
     Indication: CHRONIC OBSTRUCTIVE PULMONARY DISEASE
     Route: 055
     Dates: start: 20160620, end: 20170606
  5. METHYCOBAL [Concomitant]
     Active Substance: METHYLCOBALAMIN
     Route: 048
     Dates: end: 20170606
  6. OMALIZUMAB. [Concomitant]
     Active Substance: OMALIZUMAB
     Dates: end: 20170606
  7. XYZAL [Concomitant]
     Active Substance: LEVOCETIRIZINE DIHYDROCHLORIDE
     Route: 048
     Dates: end: 20170606
  8. CINAL [Concomitant]
     Active Substance: ASCORBIC ACID\CALCIUM PANTOTHENATE
     Route: 048
     Dates: end: 20170606

REACTIONS (1)
  - Death [Fatal]

NARRATIVE: CASE EVENT DATE: 20170629
